FAERS Safety Report 19153685 (Version 2)
Quarter: 2021Q3

REPORT INFORMATION
  Report Type: Report from Study
  Country: US (occurrence: US)
  Receive Date: 20210419
  Receipt Date: 20210701
  Transmission Date: 20211014
  Serious: Yes (Other)
  Sender: FDA-Public Use
  Company Number: US-TAKEDA-US202028456

PATIENT
  Age: 61 Year
  Sex: Female

DRUGS (1)
  1. HUMAN NORMAL IMMUNOGLOBULIN; LIQUID [Suspect]
     Active Substance: HUMAN IMMUNOGLOBULIN G
     Indication: PRIMARY IMMUNODEFICIENCY SYNDROME
     Dosage: 50 GRAM, MONTHLY
     Route: 042

REACTIONS (8)
  - Vertebral column mass [Unknown]
  - Rheumatoid arthritis [Unknown]
  - Pain [Unknown]
  - Vomiting [Unknown]
  - Cold sweat [Unknown]
  - Nausea [Unknown]
  - Nasopharyngitis [Recovering/Resolving]
  - Synovial cyst [Unknown]

NARRATIVE: CASE EVENT DATE: 20210623
